FAERS Safety Report 14441795 (Version 1)
Quarter: 2018Q1

REPORT INFORMATION
  Report Type: Spontaneous
  Country: US (occurrence: US)
  Receive Date: 20180125
  Receipt Date: 20180125
  Transmission Date: 20180509
  Serious: Yes (Hospitalization)
  Sender: FDA-Public Use
  Company Number: US-GLAXOSMITHKLINE-US2018GSK012375

PATIENT

DRUGS (5)
  1. NUCALA [Suspect]
     Active Substance: MEPOLIZUMAB
     Indication: EOSINOPHIL COUNT ABNORMAL
     Dosage: UNK, CYC
     Route: 058
     Dates: start: 201706, end: 2017
  2. NUCALA [Suspect]
     Active Substance: MEPOLIZUMAB
     Indication: HYPEREOSINOPHILIC SYNDROME
  3. PREDNISONE. [Suspect]
     Active Substance: PREDNISONE
     Dosage: 60 MG, QD
  4. PREDNISONE. [Suspect]
     Active Substance: PREDNISONE
     Indication: EOSINOPHIL COUNT INCREASED
     Dosage: 20 MG, QD
  5. PREDNISONE. [Suspect]
     Active Substance: PREDNISONE
     Indication: SKIN DISORDER
     Dosage: 60 MG, QD
     Dates: start: 201607, end: 201709

REACTIONS (8)
  - Product use in unapproved indication [Unknown]
  - Ill-defined disorder [Unknown]
  - Drug effective for unapproved indication [Unknown]
  - Eosinophilic pneumonia [Unknown]
  - Eosinophil count decreased [Unknown]
  - Therapeutic response unexpected [Unknown]
  - Eosinophil count increased [Unknown]
  - Off label use [Unknown]

NARRATIVE: CASE EVENT DATE: 201712
